FAERS Safety Report 14081485 (Version 1)
Quarter: 2017Q4

REPORT INFORMATION
  Report Type: Spontaneous
  Country: SE (occurrence: SE)
  Receive Date: 20171013
  Receipt Date: 20171013
  Transmission Date: 20180321
  Serious: Yes (Hospitalization)
  Sender: FDA-Public Use
  Company Number: SE-TEVA-813767ACC

PATIENT
  Age: 73 Year
  Sex: Female

DRUGS (21)
  1. XERODENT 28,6 MG/0,25 MG SUGTABLETT [Concomitant]
  2. FUROSEMID HEXAL 40 MG TABLETT [Concomitant]
  3. OMEPRAZOL SANDOZ 20 MG ENTEROKAPSEL, H?RD [Concomitant]
  4. SAROTEN 10 MG FILMDRAGERAD TABLETT [Concomitant]
  5. CANODERM 5 % KR?M [Concomitant]
  6. ALKERAN 2 MG FILMDRAGERAD TABLETT [Concomitant]
     Dosage: ACCORDING TO SPECIAL ORDINATION
  7. OXIKODON DEPOT ACINO 20 MG DEPOTTABLETT [Concomitant]
  8. PAMIDRONATDINATRIUM HOSPIRA [Concomitant]
     Active Substance: PAMIDRONATE DISODIUM
     Dosage: ACCORDING TO SPECIAL ORDINATION
  9. ARTELAC [Concomitant]
     Active Substance: HYPROMELLOSES
     Dosage: SOLUTION IN SINGLE DOSE CONTAINER
  10. OXYNORM 5 MG KAPSEL, H?RD [Concomitant]
  11. STESOLID 5 MG TABLET [Suspect]
     Active Substance: DIAZEPAM
     Indication: PAIN
     Dosage: 15 MILLIGRAM DAILY;
     Route: 048
     Dates: start: 201708, end: 20170821
  12. OXYCODONE G.L. 10 MG FILMDRAGERAD TABLETT [Concomitant]
  13. VENTILASTIN NOVOLIZER 100 MIKROGRAM/DOS INHALATIONSPULVER [Concomitant]
  14. LYRICA 75 MG KAPSEL, H?RD [Concomitant]
  15. DUORESP SPIROMAX 320 MIKROGRAM/9 MIKROGRAM/DOS INHALATIONSPULVER [Concomitant]
  16. LAXIDO APELSIN [Concomitant]
  17. ZOPIKLON PILUM 5 MG FILMDRAGERAD TABLETT [Concomitant]
     Active Substance: ZOPICLONE
  18. ALVEDON FORTE 1 G FILMDRAGERAD TABLETT [Concomitant]
  19. SPIRIVA 18 MIKROGRAM INHALATIONSPULVER, H?RD KAPSEL [Concomitant]
  20. ALVEDON 500 MG FILMDRAGERAD TABLETT [Concomitant]
  21. OXYCONTIN [Concomitant]
     Active Substance: OXYCODONE HYDROCHLORIDE

REACTIONS (5)
  - Fatigue [Recovered/Resolved]
  - Hypophagia [None]
  - Fluid intake reduced [None]
  - Oxygen saturation decreased [None]
  - General physical health deterioration [Recovered/Resolved]

NARRATIVE: CASE EVENT DATE: 201708
